FAERS Safety Report 6148954-X (Version None)
Quarter: 2009Q2

REPORT INFORMATION
  Report Type: 
  Country: None (occurrence: None)
  Receive Date: 20090406
  Receipt Date: 20090323
  Transmission Date: 20091009
  Serious: Yes (Other)
  Sender: FDA-Public Use
  Company Number: 310002M09ITA

PATIENT
  Sex: Female

DRUGS (1)
  1. GONAL-F [Suspect]
     Dates: start: 20010101, end: 20020101

REACTIONS (2)
  - ENDOMETRIAL HYPERPLASIA [None]
  - ENDOMETRIAL METAPLASIA [None]
